FAERS Safety Report 10580793 (Version 2)
Quarter: 2014Q4

REPORT INFORMATION
  Report Type: Spontaneous
  Country: US (occurrence: None)
  Receive Date: 20141110
  Receipt Date: 20141126
  Transmission Date: 20150529
  Serious: Yes (Death)
  Sender: FDA-Public Use
  Company Number: HA14-392-AE

PATIENT
  Age: 66 Year
  Sex: Male
  Weight: 100.7 kg

DRUGS (6)
  1. NAPROXEN. [Suspect]
     Active Substance: NAPROXEN
     Indication: RHEUMATOID ARTHRITIS
     Route: 048
     Dates: start: 20140214, end: 20140822
  2. CELECOXIB. [Suspect]
     Active Substance: CELECOXIB
     Dates: start: 20140214, end: 20140822
  3. IBUPROFEN. [Suspect]
     Active Substance: IBUPROFEN
     Dates: start: 20140214, end: 20140822
  4. HYDROCODONE/ACETAMINOPHEN [Concomitant]
     Active Substance: ACETAMINOPHEN\HYDROCODONE
  5. NAPROXEN. [Suspect]
     Active Substance: NAPROXEN
     Indication: OSTEOARTHRITIS
     Route: 048
     Dates: start: 20140214, end: 20140822
  6. PLACEBO [Suspect]
     Active Substance: UNSPECIFIED INGREDIENT
     Dates: start: 20140214, end: 20140822

REACTIONS (1)
  - Death [None]

NARRATIVE: CASE EVENT DATE: 20140822
